FAERS Safety Report 7689485-5 (Version None)
Quarter: 2011Q3

REPORT INFORMATION
  Report Type: 
  Country: None (occurrence: None)
  Receive Date: 20110817
  Receipt Date: 20101222
  Transmission Date: 20111222
  Serious: No
  Sender: FDA-Public Use
  Company Number: US-BAYER-2011-001098

PATIENT
  Age: 54 Year
  Sex: Female

DRUGS (1)
  1. MIRENA [Suspect]
     Indication: MENORRHAGIA
     Dosage: 20 MCG/24HR, CONT
     Route: 015
     Dates: start: 20101029

REACTIONS (8)
  - CHILLS [None]
  - POST PROCEDURAL HAEMORRHAGE [None]
  - VAGINAL DISCHARGE [None]
  - PYREXIA [None]
  - ABDOMINAL DISTENSION [None]
  - MEDICAL DEVICE COMPLICATION [None]
  - OVULATION PAIN [None]
  - BREAST TENDERNESS [None]
